FAERS Safety Report 25004677 (Version 1)
Quarter: 2025Q1

REPORT INFORMATION
  Report Type: Spontaneous
  Country: KR (occurrence: KR)
  Receive Date: 20250224
  Receipt Date: 20250224
  Transmission Date: 20250409
  Serious: Yes (Hospitalization)
  Sender: PFIZER
  Company Number: KR-PFIZER INC-202500039363

PATIENT
  Age: 79 Year
  Sex: Male

DRUGS (4)
  1. METHOTREXATE [Suspect]
     Active Substance: METHOTREXATE
     Indication: Chemotherapy
     Dosage: 1 G, 1X/DAY
     Dates: start: 20220513, end: 20220513
  2. METHOTREXATE [Suspect]
     Active Substance: METHOTREXATE
     Indication: Chemotherapy
     Dosage: 0.88 G, 1X/DAY
     Dates: start: 20220513, end: 20220513
  3. VINCRISTINE SULFATE [Suspect]
     Active Substance: VINCRISTINE SULFATE
     Indication: Chemotherapy
     Dosage: 2 MG, 1X/DAY
     Dates: start: 20220513, end: 20220513
  4. RITUXIMAB [Suspect]
     Active Substance: RITUXIMAB
     Indication: Chemotherapy
     Dosage: 900 MG, 1X/DAY
     Dates: start: 20220512, end: 20220512

REACTIONS (1)
  - Febrile neutropenia [Recovered/Resolved]

NARRATIVE: CASE EVENT DATE: 20220517
